FAERS Safety Report 8466410 (Version 2)
Quarter: 2013Q2

REPORT INFORMATION
  Report Type: Spontaneous
  Country: US (occurrence: None)
  Receive Date: 20120229
  Receipt Date: 20130322
  Transmission Date: 20140414
  Serious: Yes (Hospitalization)
  Sender: FDA-Public Use
  Company Number: PHEH2011US05270

PATIENT
  Age: 58 Year
  Sex: Male

DRUGS (7)
  1. NEORAL [Suspect]
     Indication: LIVER TRANSPLANT
     Dosage: 125 MG IN THE MORNING AND 100 MG IN THE AFTERNOON, ORAL
     Route: 048
     Dates: start: 2004
  2. LABETALOL (LABETALOL) [Concomitant]
  3. CLONIDINE (CLONIDINE) [Concomitant]
  4. ALPRAZOLAM (ALPRAZOLAM) [Concomitant]
  5. LACTULOSE (LACTULOSE) [Concomitant]
  6. PREDNISONE (PREDNISONE) [Concomitant]
  7. OXYCODONE (OXYCODONE) [Concomitant]

REACTIONS (2)
  - SEPSIS [None]
  - Staphylococcal infection [None]
